FAERS Safety Report 18413525 (Version 5)
Quarter: 2021Q3

REPORT INFORMATION
  Report Type: Report from Study
  Country: KR (occurrence: KR)
  Receive Date: 20201021
  Receipt Date: 20210929
  Transmission Date: 20211014
  Serious: Yes (Death, Hospitalization)
  Sender: FDA-Public Use
  Company Number: KR-ROCHE-2666768

PATIENT
  Age: 63 Year
  Sex: Male
  Weight: 55.46 kg

DRUGS (6)
  1. ALLEGRA [Concomitant]
     Active Substance: FEXOFENADINE HYDROCHLORIDE
     Dates: start: 20200820, end: 20200922
  2. KCL [Concomitant]
     Active Substance: POTASSIUM CHLORIDE
     Dates: start: 20201006, end: 20201007
  3. ATEZOLIZUMAB. [Suspect]
     Active Substance: ATEZOLIZUMAB
     Indication: NON-SMALL CELL LUNG CANCER
     Dosage: 05/AUG/2020,  DATE OF DOSE PRIOR TO ADVERSE EVENT. ON 18/SEP/2020,RECEIVED LAST DOSE OF ATEZOLIZUMAB
     Route: 042
     Dates: start: 20200805
  4. TAZOPERAN [Concomitant]
     Dosage: 1 VIAL
     Dates: start: 20200820, end: 20200827
  5. ADIPAM (SOUTH KOREA) [Concomitant]
     Dates: start: 20200820, end: 20200922
  6. TAZOPERAN [Concomitant]
     Dates: start: 20200929, end: 20201001

REACTIONS (2)
  - Asthenia [Fatal]
  - Hypercalcaemia [Fatal]

NARRATIVE: CASE EVENT DATE: 20200818
